FAERS Safety Report 7051239-0 (Version None)
Quarter: 2010Q4

REPORT INFORMATION
  Report Type: 
  Country: None (occurrence: None)
  Receive Date: 20101014
  Receipt Date: 20100928
  Transmission Date: 20110411
  Serious: Yes (Hospitalization)
  Sender: FDA-Public Use
  Company Number: 2010004318

PATIENT
  Age: 56 Year
  Sex: Male

DRUGS (2)
  1. ERLOTINIB HYDROCHLORIDE [Suspect]
     Indication: ADENOCARCINOMA PANCREAS
     Dosage: (100 MG, QD), ORAL
     Route: 048
     Dates: start: 20100714
  2. GEMCITABINE [Suspect]
     Indication: ADENOCARCINOMA PANCREAS
     Dosage: (2000 MG, DAYS 1, 8, AND 15), INTRAVENOUS
     Route: 042
     Dates: start: 20100714

REACTIONS (4)
  - BACK PAIN [None]
  - DEHYDRATION [None]
  - EMBOLISM ARTERIAL [None]
  - ENTERITIS [None]
